FAERS Safety Report 19490921 (Version 2)
Quarter: 2021Q3

REPORT INFORMATION
  Report Type: Spontaneous
  Country: ES (occurrence: ES)
  Receive Date: 20210705
  Receipt Date: 20210726
  Transmission Date: 20211014
  Serious: Yes (Death, Other)
  Sender: FDA-Public Use
  Company Number: ES-INTERCEPT-PM2021002082

PATIENT
  Age: 81 Year
  Sex: Male

DRUGS (2)
  1. OCALIVA [Suspect]
     Active Substance: OBETICHOLIC ACID
     Indication: PRIMARY BILIARY CHOLANGITIS
     Dosage: 5 MILLIGRAM, 2X/WK
     Route: 048
  2. OCALIVA [Suspect]
     Active Substance: OBETICHOLIC ACID
     Dosage: 5 MILLIGRAM, 3X/WK
     Route: 048

REACTIONS (6)
  - Hepatic cirrhosis [Unknown]
  - Renal disorder [Fatal]
  - Inappropriate schedule of product administration [Recovered/Resolved]
  - Portal hypertension [Unknown]
  - Primary biliary cholangitis [Unknown]
  - Ascites [Unknown]
